FAERS Safety Report 9907251 (Version 3)
Quarter: 2014Q2

REPORT INFORMATION
  Report Type: Spontaneous
  Country: DK (occurrence: IT)
  Receive Date: 20140218
  Receipt Date: 20140422
  Transmission Date: 20141212
  Serious: Yes (Hospitalization)
  Sender: FDA-Public Use
  Company Number: IT-FRI-1000054291

PATIENT
  Age: 34 Year
  Sex: Female

DRUGS (2)
  1. ESCITALOPRAM [Suspect]
     Indication: DRUG ABUSE
     Dosage: OVERDOSE: 280 MG
     Route: 048
     Dates: start: 20140116, end: 20140116
  2. VALERIANA ALFA [Suspect]
     Indication: DRUG ABUSE
     Dosage: OVERDOSE: 3000 MG
     Route: 048
     Dates: start: 20140116, end: 20140116

REACTIONS (4)
  - Drug abuse [Recovered/Resolved]
  - Overdose [Recovered/Resolved]
  - Nausea [Recovered/Resolved]
  - Sopor [Recovered/Resolved]
